FAERS Safety Report 12099113 (Version 1)
Quarter: 2016Q1

REPORT INFORMATION
  Report Type: Spontaneous
  Country: US (occurrence: US)
  Receive Date: 20160222
  Receipt Date: 20160222
  Transmission Date: 20160526
  Serious: No
  Sender: FDA-Public Use
  Company Number: US-TEVA-559922USA

PATIENT
  Age: 53 Year
  Sex: Female

DRUGS (3)
  1. MULTIVITAMINS, PLAIN [Concomitant]
     Active Substance: VITAMINS
  2. CETIRIZINE W/PSEUDOEPHEDRINE [Suspect]
     Active Substance: CETIRIZINE HYDROCHLORIDE\PSEUDOEPHEDRINE HYDROCHLORIDE
     Indication: HYPERSENSITIVITY
     Dosage: CETIRIZINE HYDROCHLORIDE 5 MG PSEUDOEPHEDRINE HYDROCHLORIDE 120 MG; ONE TABLET
     Route: 048
     Dates: start: 20150425, end: 20150425
  3. CALCIUM [Concomitant]
     Active Substance: CALCIUM

REACTIONS (1)
  - Insomnia [Recovered/Resolved]

NARRATIVE: CASE EVENT DATE: 20150425
